FAERS Safety Report 5086076-X (Version None)
Quarter: 2006Q3

REPORT INFORMATION
  Report Type: 
  Country: None (occurrence: None)
  Receive Date: 20060817
  Receipt Date: 20060811
  Transmission Date: 20061208
  Serious: Yes (Life-Threatening)
  Sender: FDA-Public Use
  Company Number: 2006P1000296

PATIENT
  Age: 79 Year
  Sex: Male
  Weight: 67 kg

DRUGS (11)
  1. RETEPLASE ( RETEPLASE) [Suspect]
     Indication: ACUTE MYOCARDIAL INFARCTION
     Dosage: 5 IU; X2; IV
     Route: 042
     Dates: start: 20060419, end: 20060419
  2. REOPRO [Suspect]
     Indication: ACUTE MYOCARDIAL INFARCTION
     Dosage: SEE IMAGE
     Route: 042
     Dates: start: 20060419, end: 20060419
  3. REOPRO [Suspect]
     Indication: ACUTE MYOCARDIAL INFARCTION
     Dosage: SEE IMAGE
     Route: 042
     Dates: start: 20060419, end: 20060420
  4. ASPIRIN [Concomitant]
  5. ENOXAPARIN SODIUM [Concomitant]
  6. CLOPIDOGREL [Concomitant]
  7. FINASTERIDE [Concomitant]
  8. SIMVASTATIN [Concomitant]
  9. OMEPRAZOLE [Concomitant]
  10. RAMIPRIL [Concomitant]
  11. METOPROLOL TARTRATE [Concomitant]

REACTIONS (5)
  - GASTRIC CANCER [None]
  - GASTROINTESTINAL HAEMORRHAGE [None]
  - INTRACARDIAC THROMBUS [None]
  - NON-CARDIAC CHEST PAIN [None]
  - VENTRICULAR FIBRILLATION [None]
